FAERS Safety Report 10240215 (Version 2)
Quarter: 2014Q2

REPORT INFORMATION
  Report Type: Spontaneous
  Country: JP (occurrence: JP)
  Receive Date: 20140617
  Receipt Date: 20140624
  Transmission Date: 20141212
  Serious: Yes (Hospitalization)
  Sender: FDA-Public Use
  Company Number: PHHY2014JP072660

PATIENT
  Age: 32 Year
  Sex: Female
  Weight: 59 kg

DRUGS (11)
  1. DICLOFENAC [Suspect]
     Indication: THREATENED LABOUR
     Dosage: 25 MG, DAILY
  2. BETAMETHASONE [Suspect]
     Indication: FOETAL GROWTH RESTRICTION
     Dosage: 12 MG, DAILY
  3. MORPHINE [Suspect]
     Indication: SPINAL ANAESTHESIA
     Dosage: 100 UG, UNK
  4. MAGNESIUM SULFATE [Suspect]
     Indication: THREATENED LABOUR
     Dosage: 1 G/HOUR
     Route: 042
  5. NIFEDIPINE [Suspect]
     Indication: THREATENED LABOUR
     Dosage: 20 MG, DAILY
     Route: 048
  6. UTEMERIN [Suspect]
     Indication: THREATENED LABOUR
     Dosage: 100 UG, PER MIN
     Route: 042
  7. UTEMERIN [Suspect]
     Dosage: 130 UG, PER MIN
     Route: 042
  8. UTEMERIN [Suspect]
     Dosage: 200 UG, PER MIN
     Route: 042
  9. UTEMERIN [Suspect]
     Dosage: 66 UG, PER MIN
     Route: 042
  10. BUPIVACAINE [Suspect]
     Indication: SPINAL ANAESTHESIA
  11. FUROSEMIDE [Concomitant]
     Indication: URINE OUTPUT DECREASED

REACTIONS (2)
  - Premature delivery [Unknown]
  - Maternal exposure during pregnancy [Unknown]
